FAERS Safety Report 9170933 (Version 1)
Quarter: 2013Q1

REPORT INFORMATION
  Report Type: Spontaneous
  Country: US (occurrence: US)
  Receive Date: 20130319
  Receipt Date: 20130319
  Transmission Date: 20140127
  Serious: No
  Sender: FDA-Public Use
  Company Number: US-BAYER-2013-033744

PATIENT
  Age: 73 Year
  Sex: Female
  Weight: 72.56 kg

DRUGS (10)
  1. ALEVE [Suspect]
     Indication: HEADACHE
  2. BAYER ASPIRIN [Concomitant]
  3. MOTRIN [Concomitant]
  4. TYLENOL EXTRA-STRENGTH [Concomitant]
  5. GLUCOSAMINE [Concomitant]
  6. CHONDROITIN [Concomitant]
  7. SIMVASTATIN [Concomitant]
  8. VITAMINS [Concomitant]
  9. CALCIUM [Concomitant]
  10. IBUPROFEN [Concomitant]

REACTIONS (2)
  - Drug ineffective [None]
  - Product quality issue [None]
